FAERS Safety Report 21701134 (Version 1)
Quarter: 2022Q4

REPORT INFORMATION
  Report Type: Spontaneous
  Country: CN (occurrence: CN)
  Receive Date: 20221208
  Receipt Date: 20221208
  Transmission Date: 20230112
  Serious: Yes (Hospitalization, Other)
  Sender: FDA-Public Use
  Company Number: CN-PFIZER INC-PV202200116995

PATIENT
  Age: 12 Year
  Sex: Female
  Weight: 32 kg

DRUGS (7)
  1. CYTARABINE [Suspect]
     Active Substance: CYTARABINE
     Indication: Chemotherapy
     Dosage: 0.08 G, 1X/DAY
     Route: 041
     Dates: start: 20221111, end: 20221114
  2. CYCLOPHOSPHAMIDE [Suspect]
     Active Substance: CYCLOPHOSPHAMIDE
     Indication: Chemotherapy
     Dosage: 1.1 G, 1X/DAY
     Route: 041
     Dates: start: 20221109, end: 20221109
  3. METHOTREXATE [Suspect]
     Active Substance: METHOTREXATE
     Indication: Chemotherapy
     Dosage: 0.012 G, 1X/DAY
     Route: 041
     Dates: start: 20221111, end: 20221111
  4. DEXAMETHASONE SODIUM PHOSPHATE [Concomitant]
     Active Substance: DEXAMETHASONE SODIUM PHOSPHATE
     Indication: Hypersensitivity
     Dosage: 2.5 MG, 1X/DAY
     Route: 041
     Dates: start: 20221111, end: 20221111
  5. TROPISETRON HYDROCHLORIDE [Concomitant]
     Active Substance: TROPISETRON HYDROCHLORIDE
     Indication: Antiemetic supportive care
     Dosage: 2 MG, 1X/DAY
     Route: 041
     Dates: start: 20221118, end: 20221123
  6. CIMETIDINE [Concomitant]
     Active Substance: CIMETIDINE
     Indication: Antiemetic supportive care
     Dosage: 2 ML, 1X/DAY
     Route: 041
     Dates: start: 20221119, end: 20221126
  7. CIMETIDINE [Concomitant]
     Active Substance: CIMETIDINE
     Indication: Therapeutic procedure

REACTIONS (2)
  - Myelosuppression [Unknown]
  - Granulocyte count decreased [Recovering/Resolving]

NARRATIVE: CASE EVENT DATE: 20221119
